FAERS Safety Report 19035951 (Version 1)
Quarter: 2021Q1

REPORT INFORMATION
  Report Type: Spontaneous
  Country: DE (occurrence: DE)
  Receive Date: 20210321
  Receipt Date: 20210321
  Transmission Date: 20210420
  Serious: Yes (Hospitalization)
  Sender: FDA-Public Use
  Company Number: DE-TEVA-2021-DE-1891662

PATIENT
  Age: 79 Year
  Sex: Female

DRUGS (10)
  1. APIXABAN [Concomitant]
     Active Substance: APIXABAN
     Dosage: 5 MG, 1?0?1?0:UNIT DOSE:10MILLIGRAM
  2. ATORVASTATIN [Concomitant]
     Active Substance: ATORVASTATIN
     Dosage: 40 MILLIGRAM DAILY; 0?0?1?0
  3. DEKRISTOL 1000 [Concomitant]
     Dosage: 1000 IU (INTERNATIONAL UNIT) DAILY; 1?0?0?0
  4. CEFPODOXIM [Suspect]
     Active Substance: CEFPODOXIME PROXETIL
     Indication: DIVERTICULITIS
     Dosage: 200 MG, SINCE 14112020
     Dates: start: 20201114
  5. METRONIDAZOLE. [Suspect]
     Active Substance: METRONIDAZOLE
     Indication: DIVERTICULITIS
     Dosage: 400 MG, SINCE 14112020
     Dates: start: 20201114
  6. ESOMEPRAZOL [Concomitant]
     Active Substance: ESOMEPRAZOLE
     Dosage: 40 MILLIGRAM DAILY; 0?0?1?0
  7. ESCITALOPRAM [Concomitant]
     Active Substance: ESCITALOPRAM OXALATE
     Dosage: 10 MG, 1?0?0?0,UNIT DOSE:1MILLLIGRAM
  8. LERCANIDIPIN [Concomitant]
     Active Substance: LERCANIDIPINE
     Dosage: 1 DOSAGE FORMS DAILY; 0?0?1?0
  9. LEVOTHYROXINE SODIUM. [Concomitant]
     Active Substance: LEVOTHYROXINE SODIUM
     Dosage: 150 MICROGRAM DAILY; 1?0?0?0
  10. METOPROLOL. [Concomitant]
     Active Substance: METOPROLOL
     Dosage: 95 MG, 1?0?1?0:UNIT DOSE:190MILLIGRAM

REACTIONS (2)
  - Fall [Unknown]
  - Product prescribing error [Unknown]

NARRATIVE: CASE EVENT DATE: 20201114
